FAERS Safety Report 5519408-6 (Version None)
Quarter: 2007Q4

REPORT INFORMATION
  Report Type: 
  Country: None (occurrence: None)
  Receive Date: 20071116
  Receipt Date: 20071105
  Transmission Date: 20080405
  Serious: Yes (Other)
  Sender: FDA-Public Use
  Company Number: US-WYE-H01051707

PATIENT
  Sex: Female
  Weight: 99.88 kg

DRUGS (1)
  1. PREMPRO [Suspect]
     Indication: HOT FLUSH
     Dosage: UNKNOWN
     Route: 048
     Dates: start: 19940101, end: 19990101

REACTIONS (2)
  - ARRHYTHMIA [None]
  - BREAST CANCER [None]
